FAERS Safety Report 16642333 (Version 3)
Quarter: 2019Q4

REPORT INFORMATION
  Report Type: Spontaneous
  Country: DE (occurrence: DE)
  Receive Date: 20190729
  Receipt Date: 20191105
  Transmission Date: 20200122
  Serious: No
  Sender: FDA-Public Use
  Company Number: DE-PFIZER INC-2019319115

PATIENT
  Age: 89 Year
  Sex: Female
  Weight: 65 kg

DRUGS (1)
  1. TAVOR (LORAZEPAM) [Suspect]
     Active Substance: LORAZEPAM
     Dosage: UNK
     Dates: start: 2019

REACTIONS (3)
  - Dysphagia [Unknown]
  - Salivary hypersecretion [Unknown]
  - Abnormal behaviour [Unknown]

NARRATIVE: CASE EVENT DATE: 2019
